FAERS Safety Report 5999290-3 (Version None)
Quarter: 2008Q4

REPORT INFORMATION
  Report Type: 
  Country: None (occurrence: None)
  Receive Date: 20081215
  Receipt Date: 20081210
  Transmission Date: 20090506
  Serious: Yes (Hospitalization, Other)
  Sender: FDA-Public Use
  Company Number: FR-BRISTOL-MYERS SQUIBB COMPANY-14440200

PATIENT
  Age: 64 Year
  Sex: Male

DRUGS (13)
  1. COUMADIN [Suspect]
     Dates: start: 20080101, end: 20081015
  2. PLAVIX [Suspect]
     Dates: start: 20080101
  3. TAHOR [Concomitant]
     Dates: start: 20080101
  4. ELISOR [Concomitant]
  5. ATROVENT [Concomitant]
     Dates: end: 20081020
  6. ESIDRIX [Concomitant]
     Dates: start: 20080101, end: 20081023
  7. FUROSEMIDE [Concomitant]
  8. KARDEGIC [Concomitant]
  9. SPECIAFOLDINE [Concomitant]
     Dates: end: 20081022
  10. ZOLPIDEM [Concomitant]
  11. TARDYFERON [Concomitant]
     Dates: end: 20081022
  12. COVERSYL [Concomitant]
  13. SERESTA [Concomitant]

REACTIONS (4)
  - ANAEMIA [None]
  - GASTRIC HAEMORRHAGE [None]
  - GASTRODUODENAL ULCER [None]
  - HEMIPLEGIA [None]
